FAERS Safety Report 16323189 (Version 5)
Quarter: 2025Q1

REPORT INFORMATION
  Report Type: Spontaneous
  Country: ZA (occurrence: ZA)
  Receive Date: 20190517
  Receipt Date: 20250212
  Transmission Date: 20250409
  Serious: Yes (Other)
  Sender: AMGEN
  Company Number: ZA-PFIZER INC-2019203987

PATIENT
  Age: 62 Year
  Sex: Female
  Weight: 95 kg

DRUGS (6)
  1. ENBREL [Suspect]
     Active Substance: ETANERCEPT
     Indication: Product used for unknown indication
     Dosage: 50 MG, WEEKLY
     Route: 058
     Dates: start: 2016
  2. AZT [Suspect]
     Active Substance: ZIDOVUDINE
     Indication: Product used for unknown indication
     Dosage: 150 MG, DAILY
     Route: 065
     Dates: start: 201812
  3. CHLOROQUINE [Concomitant]
     Active Substance: CHLOROQUINE
     Dosage: 200 MG, DAILY
  4. METHOTREXATE SODIUM [Concomitant]
     Active Substance: METHOTREXATE SODIUM
     Dosage: 15 MG, WEEKLY
     Dates: start: 2012
  5. INFLIXIMAB [Concomitant]
     Active Substance: INFLIXIMAB
     Dates: start: 2012
  6. SULFASALAZINE [Concomitant]
     Active Substance: SULFASALAZINE
     Dosage: 500 MG, 2X/DAY
     Dates: start: 2012

REACTIONS (4)
  - Type 2 diabetes mellitus [Unknown]
  - Haemoglobin decreased [Recovered/Resolved]
  - Dyslipidaemia [Unknown]
  - Health assessment questionnaire score increased [Unknown]

NARRATIVE: CASE EVENT DATE: 20180401
